FAERS Safety Report 9224865 (Version 2)
Quarter: 2013Q2

REPORT INFORMATION
  Report Type: Spontaneous
  Country: US (occurrence: US)
  Receive Date: 20130411
  Receipt Date: 20130415
  Transmission Date: 20140414
  Serious: Yes (Other)
  Sender: FDA-Public Use
  Company Number: US-PFIZER INC-2013111053

PATIENT
  Sex: Female

DRUGS (6)
  1. CELEBREX [Suspect]
     Dosage: UNK
  2. DETROL LA [Suspect]
     Dosage: UNK
  3. LIPITOR [Suspect]
     Dosage: UNK
  4. LYRICA [Suspect]
     Dosage: UNK
  5. ZOLOFT [Suspect]
     Dosage: UNK
  6. NEURONTIN [Suspect]
     Dosage: UNK

REACTIONS (7)
  - Rheumatoid arthritis [Unknown]
  - Diabetes mellitus [Unknown]
  - Anaemia [Unknown]
  - Osteoarthritis [Unknown]
  - Depression [Unknown]
  - Somnambulism [Unknown]
  - Upper limb fracture [Unknown]
